FAERS Safety Report 6517817-X (Version None)
Quarter: 2009Q4

REPORT INFORMATION
  Report Type: 
  Country: None (occurrence: None)
  Receive Date: 20091218
  Receipt Date: 20091202
  Transmission Date: 20100525
  Serious: Yes (Life-Threatening)
  Sender: FDA-Public Use
  Company Number: 2009001923

PATIENT
  Age: 70 Year
  Sex: Female
  Weight: 53 kg

DRUGS (11)
  1. ERLOTINIB HYDROCHLORIDE [Suspect]
     Indication: LUNG ADENOCARCINOMA
     Dosage: (150 MG,QD),ORAL
     Route: 048
     Dates: start: 20090519, end: 20090602
  2. RHEUMATREX (METHOTRXATE SODIUM) [Concomitant]
  3. MAGLAX [Concomitant]
  4. LOXONIN (LOXOPROFEN SODIUM) [Concomitant]
  5. SELBEX (TEPRENONE) [Concomitant]
  6. OXYCONTIN [Concomitant]
  7. FOSAMAX [Concomitant]
  8. PREDNISOLONE [Concomitant]
  9. FAMOTIDINE [Concomitant]
  10. VERAPAMIL HYDROCHLORIDE [Concomitant]
  11. DECADRON [Concomitant]

REACTIONS (6)
  - HAEMOGLOBIN DECREASED [None]
  - LUNG ADENOCARCINOMA [None]
  - MALIGNANT NEOPLASM PROGRESSION [None]
  - NEUTROPHIL COUNT DECREASED [None]
  - PLATELET COUNT DECREASED [None]
  - WHITE BLOOD CELL COUNT DECREASED [None]
